FAERS Safety Report 7632847-2 (Version None)
Quarter: 2011Q3

REPORT INFORMATION
  Report Type: 
  Country: None (occurrence: None)
  Receive Date: 20110725
  Receipt Date: 20110712
  Transmission Date: 20111222
  Serious: Yes (Other)
  Sender: FDA-Public Use
  Company Number: PHHY2011US16888

PATIENT
  Sex: Male

DRUGS (9)
  1. VEMPAT [Concomitant]
  2. ENALAPRIL MALEATE [Concomitant]
  3. AFINITOR [Suspect]
     Indication: TUBEROUS SCLEROSIS
     Dosage: 5 MG, DAILY
     Route: 048
     Dates: start: 20110705
  4. FOCALIN XR [Concomitant]
  5. BACTRIM [Concomitant]
  6. AFINITOR [Suspect]
     Indication: ASTROCYTOMA
     Dosage: 5 MG, DAILY
     Route: 048
     Dates: start: 20110107, end: 20110630
  7. CLONIDINE [Concomitant]
  8. CARAFATE [Concomitant]
  9. SABRIL [Concomitant]

REACTIONS (12)
  - FOAMING AT MOUTH [None]
  - FALL [None]
  - DISORIENTATION [None]
  - DYSPNOEA [None]
  - BLOOD PRESSURE DECREASED [None]
  - CYANOSIS [None]
  - PYREXIA [None]
  - HERPANGINA [None]
  - NASAL CONGESTION [None]
  - CONVULSION [None]
  - GAIT DISTURBANCE [None]
  - COUGH [None]
